FAERS Safety Report 4675487-X (Version None)
Quarter: 2005Q2

REPORT INFORMATION
  Report Type: 
  Country: None (occurrence: None)
  Receive Date: 20050527
  Receipt Date: 20050323
  Transmission Date: 20051028
  Serious: No
  Sender: FDA-Public Use
  Company Number: US-BRISTOL-MYERS SQUIBB COMPANY-12907861

PATIENT
  Age: 41 Year
  Sex: Male
  Weight: 52 kg

DRUGS (3)
  1. ARIPIPRAZOLE [Suspect]
     Indication: AGGRESSION
     Dosage: INITIATED AT 20 MG/DAY
  2. TOPAMAX [Concomitant]
  3. ATIVAN [Concomitant]

REACTIONS (1)
  - AGITATION [None]
